FAERS Safety Report 10269646 (Version 1)
Quarter: 2014Q2

REPORT INFORMATION
  Report Type: Spontaneous
  Country: SG (occurrence: None)
  Receive Date: 20140625
  Receipt Date: 20140625
  Transmission Date: 20141212
  Serious: Yes (Other)
  Sender: FDA-Public Use
  Company Number: SYM-2014-22304

PATIENT
  Age: 27 Year
  Sex: Female

DRUGS (5)
  1. ACICLOVIR (ACICLOVIR) [Suspect]
     Indication: MOUTH ULCERATION
     Dates: start: 20140402, end: 20140430
  2. ACICLOVIR (ACICLOVIR) [Suspect]
     Indication: HERPES SIMPLEX
     Dates: start: 20140402, end: 20140430
  3. VANCOMYCIN (VANCOMYCIN) [Suspect]
     Indication: STAPHYLOCOCCAL INFECTION
     Dates: start: 20140421, end: 20140430
  4. NORETHISTERONE (NORETHISTERONE) [Concomitant]
  5. POSACONAZOLE (POSACONAZOLE) [Concomitant]

REACTIONS (1)
  - Red man syndrome [None]
